FAERS Safety Report 15976329 (Version 2)
Quarter: 2019Q2

REPORT INFORMATION
  Report Type: Spontaneous
  Country: US (occurrence: US)
  Receive Date: 20190218
  Receipt Date: 20190424
  Transmission Date: 20190711
  Serious: No
  Sender: FDA-Public Use
  Company Number: US-PFIZER INC-2019068913

PATIENT

DRUGS (4)
  1. MORPHINE SULFATE. [Suspect]
     Active Substance: MORPHINE SULFATE
     Indication: PAIN
     Dosage: 60 MG, DAILY
  2. OXYCODONE [Suspect]
     Active Substance: OXYCODONE
     Indication: PAIN
     Dosage: 180 MG, DAILY (30MG 6/DAY)
  3. OXYCODONE [Suspect]
     Active Substance: OXYCODONE
     Dosage: 120 MG, DAILY
  4. OXYCODONE [Suspect]
     Active Substance: OXYCODONE
     Dosage: 120 MG, DAILY (6/DAY)

REACTIONS (1)
  - Drug ineffective [Unknown]
